FAERS Safety Report 9338251 (Version 2)
Quarter: 2013Q3

REPORT INFORMATION
  Report Type: Spontaneous
  Country: US (occurrence: US)
  Receive Date: 20130610
  Receipt Date: 20130719
  Transmission Date: 20140515
  Serious: Yes (Hospitalization)
  Sender: FDA-Public Use
  Company Number: US-B.I. PHARMACEUTICALS,INC./RIDGEFIELD-2013-BI-15989BP

PATIENT
  Age: 56 Year
  Sex: Female
  Weight: 81 kg

DRUGS (1)
  1. COMBIVENT [Suspect]
     Indication: ASTHMA
     Dosage: STRENGTH: 20 MCG / 100 MCG; DAILY DOSE: 80MCG/400MCG
     Route: 055
     Dates: start: 20130430, end: 20130531

REACTIONS (3)
  - Anxiety [Recovered/Resolved]
  - Dyspepsia [Recovered/Resolved]
  - Product quality issue [Recovered/Resolved]
